FAERS Safety Report 4295001-0 (Version None)
Quarter: 2004Q1

REPORT INFORMATION
  Report Type: 
  Country: None (occurrence: None)
  Receive Date: 20040216
  Receipt Date: 20021118
  Transmission Date: 20041129
  Serious: Yes (Hospitalization)
  Sender: FDA-Public Use
  Company Number: 200214587FR

PATIENT
  Age: 45 Year
  Sex: Female

DRUGS (10)
  1. HYDROCORTISONE [Suspect]
     Indication: MULTIPLE SCLEROSIS
     Route: 048
     Dates: start: 20010801
  2. VIOXX [Suspect]
     Route: 048
     Dates: start: 20020401
  3. SINTROM [Suspect]
  4. MOPRAL [Suspect]
     Indication: HYPERTHYROIDISM
     Route: 048
     Dates: start: 19960101
  5. REBIF [Suspect]
     Route: 058
     Dates: start: 20010423, end: 20020913
  6. LIPANTHYL ^THISSEN^ [Suspect]
     Route: 048
     Dates: start: 19950101
  7. DIDRONEL [Concomitant]
  8. CALCIUM WITH VITAMIN D [Concomitant]
  9. LYSANXIA 10 MG [Concomitant]
  10. CONTRAMAL [Concomitant]

REACTIONS (1)
  - HYPERTHYROIDISM [None]
